FAERS Safety Report 25022844 (Version 4)
Quarter: 2025Q2

REPORT INFORMATION
  Report Type: Report from Study
  Country: IT (occurrence: IT)
  Receive Date: 20250228
  Receipt Date: 20250524
  Transmission Date: 20250716
  Serious: Yes (Hospitalization)
  Sender: ROCHE
  Company Number: IT-ROCHE-10000213464

PATIENT
  Age: 65 Year
  Sex: Male

DRUGS (5)
  1. FARICIMAB [Suspect]
     Active Substance: FARICIMAB
     Indication: Diabetic retinal oedema
     Dosage: HE RECEIVED MOST RECENT DOSE OF FARICIMAB (6MG) ON : 20 /JAN/2025?LAST DOSE OF FARICIMAB: 6 MG
     Route: 050
  2. METFORMIN HYDROCHLORIDE [Concomitant]
     Active Substance: METFORMIN HYDROCHLORIDE
     Indication: Type 2 diabetes mellitus
     Route: 048
     Dates: start: 2022
  3. LUXAZONE COLL [Concomitant]
     Indication: Visual impairment
     Dosage: LEFT EYE
     Route: 061
     Dates: start: 20250213
  4. COSOPT COLL [Concomitant]
     Indication: Visual impairment
     Dosage: LEFT EYE
     Route: 061
     Dates: start: 20250213
  5. VALACYCLOVIR HYDROCHLORIDE [Concomitant]
     Active Substance: VALACYCLOVIR HYDROCHLORIDE
     Indication: Visual impairment
     Route: 048
     Dates: start: 20250213

REACTIONS (1)
  - Iridocyclitis [Recovered/Resolved]

NARRATIVE: CASE EVENT DATE: 20250208
